FAERS Safety Report 21502957 (Version 6)
Quarter: 2023Q2

REPORT INFORMATION
  Report Type: Spontaneous
  Country: US (occurrence: US)
  Receive Date: 20221025
  Receipt Date: 20230419
  Transmission Date: 20230722
  Serious: No
  Sender: FDA-Public Use
  Company Number: US-DSJP-DSU-2022-138578

PATIENT
  Sex: Female

DRUGS (1)
  1. ENHERTU [Suspect]
     Active Substance: FAM-TRASTUZUMAB DERUXTECAN-NXKI
     Indication: Breast cancer metastatic
     Dosage: 383 MG, UNK
     Route: 065

REACTIONS (12)
  - Fatigue [Unknown]
  - Dyspepsia [Unknown]
  - Constipation [Unknown]
  - Diarrhoea [Unknown]
  - Dizziness [Unknown]
  - Abdominal pain [Unknown]
  - Decreased appetite [Unknown]
  - Feeling abnormal [Unknown]
  - Insomnia [Unknown]
  - Alopecia [Unknown]
  - Feeling abnormal [Unknown]
  - Unevaluable event [Unknown]
